FAERS Safety Report 17181256 (Version 1)
Quarter: 2019Q4

REPORT INFORMATION
  Report Type: Spontaneous
  Country: US (occurrence: US)
  Receive Date: 20191220
  Receipt Date: 20191220
  Transmission Date: 20200122
  Serious: Yes (Hospitalization)
  Sender: FDA-Public Use
  Company Number: NVSC2019US073826

PATIENT

DRUGS (1)
  1. DEFERASIROX. [Suspect]
     Active Substance: DEFERASIROX
     Indication: CARDIAC IRON OVERLOAD
     Dosage: 30 MG/KG, QD
     Route: 065

REACTIONS (2)
  - Vomiting [Unknown]
  - Abdominal pain [Unknown]
